FAERS Safety Report 14612982 (Version 1)
Quarter: 2018Q1

REPORT INFORMATION
  Report Type: Spontaneous
  Country: US (occurrence: US)
  Receive Date: 20180307
  Receipt Date: 20180307
  Transmission Date: 20180509
  Serious: Yes (Other)
  Sender: FDA-Public Use
  Company Number: None

PATIENT
  Age: 24 Year
  Sex: Male
  Weight: 44 kg

DRUGS (2)
  1. PALIPERIDONE ER [Suspect]
     Active Substance: PALIPERIDONE
     Indication: SPINA BIFIDA
     Dosage: DOSE - 3 MG PO QD?DATE OF USE - TEVA 10/26/17 - 1/18
     Route: 048
     Dates: start: 20171026, end: 201801
  2. PALIPERIDONE ER [Suspect]
     Active Substance: PALIPERIDONE
     Indication: HEADACHE
     Dosage: DOSE - 3 MG PO QD?DATE OF USE - TEVA 10/26/17 - 1/18
     Route: 048
     Dates: start: 20171026, end: 201801

REACTIONS (6)
  - Product substitution issue [None]
  - Aggression [None]
  - Abnormal behaviour [None]
  - Condition aggravated [None]
  - Product availability issue [None]
  - Mood swings [None]
